FAERS Safety Report 15587557 (Version 1)
Quarter: 2018Q4

REPORT INFORMATION
  Report Type: Spontaneous
  Country: US (occurrence: US)
  Receive Date: 20181105
  Receipt Date: 20181105
  Transmission Date: 20190205
  Serious: Yes (Other)
  Sender: FDA-Public Use
  Company Number: None

PATIENT
  Age: 62 Year
  Sex: Female
  Weight: 56.7 kg

DRUGS (1)
  1. NUCALA [Suspect]
     Active Substance: MEPOLIZUMAB
     Indication: ASTHMA
     Dosage: ?          OTHER ROUTE:INJECTION?
     Dates: start: 201706, end: 201805

REACTIONS (9)
  - Fatigue [None]
  - Headache [None]
  - Immune system disorder [None]
  - Tooth infection [None]
  - Nasopharyngitis [None]
  - Lichen planus [None]
  - Influenza [None]
  - Tooth abscess [None]
  - Alopecia [None]
